FAERS Safety Report 8113641-5 (Version None)
Quarter: 2012Q1

REPORT INFORMATION
  Report Type: 
  Country: None (occurrence: None)
  Receive Date: 20120203
  Receipt Date: 20120131
  Transmission Date: 20120608
  Serious: Yes (Hospitalization)
  Sender: FDA-Public Use
  Company Number: FR-PFIZER INC-2012025442

PATIENT
  Age: 54 Year
  Sex: Female

DRUGS (10)
  1. ABILIFY [Concomitant]
  2. ESCITALOPRAM [Concomitant]
  3. PRAZEPAM [Concomitant]
  4. TRIMEPRAZINE TARTRATE [Concomitant]
  5. NEXIUM [Concomitant]
  6. LYRICA [Suspect]
     Dosage: 100 MG, 3X/DAY
     Route: 048
     Dates: start: 20111201, end: 20120117
  7. IMOVANE [Concomitant]
  8. EZETIMIBE [Concomitant]
  9. LEVOTHYROXINE SODIUM [Concomitant]
  10. ACARBOSE [Concomitant]

REACTIONS (3)
  - ABDOMINAL PAIN UPPER [None]
  - PANCREATITIS ACUTE [None]
  - LIPASE INCREASED [None]
